FAERS Safety Report 10233173 (Version 1)
Quarter: 2014Q2

REPORT INFORMATION
  Report Type: Spontaneous
  Country: US (occurrence: None)
  Receive Date: 20140611
  Receipt Date: 20140611
  Transmission Date: 20141212
  Serious: No
  Sender: FDA-Public Use
  Company Number: None

PATIENT
  Age: 63 Year
  Sex: Male
  Weight: 74.2 kg

DRUGS (1)
  1. CETUXIMAB (ERBITUX) (714692) [Suspect]
     Dosage: 250MG/M2= 498 MG IV OVER 60 MIN VIA 0.22 MICRON FILTER WEEKLY, CHEMORADIATION/WEEK 7

REACTIONS (2)
  - Rash [None]
  - Oral discomfort [None]
